FAERS Safety Report 9522472 (Version 1)
Quarter: 2013Q3

REPORT INFORMATION
  Report Type: Spontaneous
  Country: CA (occurrence: None)
  Receive Date: 20130911
  Receipt Date: 20130911
  Transmission Date: 20140515
  Serious: No
  Sender: FDA-Public Use
  Company Number: AECAN201200498

PATIENT
  Age: 69 Year
  Sex: Male
  Weight: 85 kg

DRUGS (10)
  1. GAMUNEX [Suspect]
     Indication: CHRONIC INFLAMMATORY DEMYELINATING POLYRADICULONEUROPATHY
     Route: 042
     Dates: start: 20120912, end: 20120912
  2. GAMUNEX [Suspect]
     Indication: ATAXIA
     Route: 042
     Dates: start: 20120912, end: 20120912
  3. BENADRYL [Concomitant]
  4. DECADRON [Concomitant]
  5. NORVASC [Concomitant]
  6. ATACAND [Concomitant]
  7. LOPRESSOR [Concomitant]
  8. NEXIUM [Concomitant]
  9. ASA [Concomitant]
  10. CRESTOR [Concomitant]

REACTIONS (1)
  - Dermatitis [None]
